FAERS Safety Report 4809658-6 (Version None)
Quarter: 2005Q4

REPORT INFORMATION
  Report Type: 
  Country: None (occurrence: None)
  Receive Date: 20051021
  Receipt Date: 20051010
  Transmission Date: 20060501
  Serious: Yes (Hospitalization)
  Sender: FDA-Public Use
  Company Number: 2005BI018835

PATIENT
  Age: 58 Year
  Sex: Female
  Weight: 68.0396 kg

DRUGS (2)
  1. AVONEX [Suspect]
     Indication: MULTIPLE SCLEROSIS
     Dosage: QW; IM
     Route: 030
     Dates: start: 20000101, end: 20030101
  2. AVONEX [Suspect]
     Indication: MULTIPLE SCLEROSIS
     Dosage: 30 UG; QW; IM
     Route: 030
     Dates: start: 20030101

REACTIONS (8)
  - FACIAL BONES FRACTURE [None]
  - FAECAL INCONTINENCE [None]
  - FALL [None]
  - HYPOACUSIS [None]
  - INFLUENZA LIKE ILLNESS [None]
  - PYREXIA [None]
  - URINARY TRACT INFECTION [None]
  - VISUAL ACUITY REDUCED [None]
